FAERS Safety Report 13260508 (Version 2)
Quarter: 2017Q2

REPORT INFORMATION
  Report Type: Report from Study
  Country: CL (occurrence: CL)
  Receive Date: 20170222
  Receipt Date: 20170531
  Transmission Date: 20170830
  Serious: Yes (Death, Other)
  Sender: FDA-Public Use
  Company Number: PHHY2017CL024662

PATIENT
  Age: 51 Year
  Sex: Female
  Weight: 66.5 kg

DRUGS (1)
  1. GLIVEC [Suspect]
     Active Substance: IMATINIB MESYLATE
     Indication: ACUTE LYMPHOCYTIC LEUKAEMIA
     Dosage: 600 MG, UNK
     Route: 048
     Dates: start: 20151022

REACTIONS (5)
  - Second primary malignancy [Unknown]
  - Metastases to liver [Fatal]
  - Abdominal pain [Unknown]
  - Neoplasm malignant [Unknown]
  - Metastasis [Unknown]

NARRATIVE: CASE EVENT DATE: 20170203
